FAERS Safety Report 16400274 (Version 1)
Quarter: 2019Q2

REPORT INFORMATION
  Report Type: Spontaneous
  Country: US (occurrence: US)
  Receive Date: 20190606
  Receipt Date: 20190606
  Transmission Date: 20190711
  Serious: No
  Sender: FDA-Public Use
  Company Number: US-ALLERGAN-1832617US

PATIENT
  Sex: Female
  Weight: 110.66 kg

DRUGS (3)
  1. KYBELLA [Suspect]
     Active Substance: DEOXYCHOLIC ACID
     Dosage: 4 ML (0.2ML VOLUME PER INJECTION), SINGLE
     Route: 058
     Dates: start: 20161215, end: 20161215
  2. KYBELLA [Suspect]
     Active Substance: DEOXYCHOLIC ACID
     Dosage: 4ML (0.2ML VOLUME PER INJECTION), SINGLE
     Route: 058
     Dates: start: 20160924, end: 20160924
  3. KYBELLA [Suspect]
     Active Substance: DEOXYCHOLIC ACID
     Indication: FAT TISSUE INCREASED
     Dosage: 4 ML, (0.2ML VOLUME PER INJECTION) SINGLE
     Route: 058
     Dates: start: 20170414, end: 20170414

REACTIONS (2)
  - Injection site induration [Unknown]
  - Injection site swelling [Unknown]
